FAERS Safety Report 24788052 (Version 1)
Quarter: 2024Q4

REPORT INFORMATION
  Report Type: Report from Study
  Country: SE (occurrence: SE)
  Receive Date: 20241230
  Receipt Date: 20241230
  Transmission Date: 20250114
  Serious: Yes (Other)
  Sender: JOHNSON AND JOHNSON
  Company Number: SE-JNJFOC-20241273183

PATIENT

DRUGS (1)
  1. DARZALEX [Suspect]
     Active Substance: DARATUMUMAB
     Indication: Plasma cell myeloma
     Route: 065

REACTIONS (1)
  - Hypogammaglobulinaemia [Unknown]
